FAERS Safety Report 6171736-X (Version None)
Quarter: 2009Q2

REPORT INFORMATION
  Report Type: 
  Country: None (occurrence: None)
  Receive Date: 20090429
  Receipt Date: 20090427
  Transmission Date: 20091009
  Serious: Yes (Other)
  Sender: FDA-Public Use
  Company Number: D0061406A

PATIENT
  Sex: Female

DRUGS (1)
  1. PAROXETINE HCL [Suspect]
     Route: 065
     Dates: start: 20070101

REACTIONS (14)
  - ABDOMINAL PAIN UPPER [None]
  - AFFECT LABILITY [None]
  - ANXIETY [None]
  - DEPRESSION [None]
  - DRUG INTOLERANCE [None]
  - FATIGUE [None]
  - HEADACHE [None]
  - MOVEMENT DISORDER [None]
  - MUSCLE TWITCHING [None]
  - PAIN [None]
  - PANIC ATTACK [None]
  - RESTLESSNESS [None]
  - SUICIDAL IDEATION [None]
  - WITHDRAWAL SYNDROME [None]
